FAERS Safety Report 23065679 (Version 2)
Quarter: 2023Q4

REPORT INFORMATION
  Report Type: Report from Study
  Country: US (occurrence: US)
  Receive Date: 20231014
  Receipt Date: 20231017
  Transmission Date: 20240110
  Serious: No
  Sender: FDA-Public Use
  Company Number: US-002147023-NVSC2023US220831

PATIENT
  Sex: Female

DRUGS (1)
  1. MAYZENT [Suspect]
     Active Substance: SIPONIMOD
     Indication: Product used for unknown indication
     Dosage: UNK UNK, QD (AT EVENING), LAST DOSE WAS TAKEN AT LAST EVENING
     Route: 065

REACTIONS (3)
  - Myalgia [Unknown]
  - Overweight [Unknown]
  - Asthenia [Unknown]
